FAERS Safety Report 18061785 (Version 1)
Quarter: 2020Q3

REPORT INFORMATION
  Report Type: Spontaneous
  Country: US (occurrence: US)
  Receive Date: 20200723
  Receipt Date: 20200723
  Transmission Date: 20201103
  Serious: Yes (Other)
  Sender: FDA-Public Use
  Company Number: US-EPIC PHARMA LLC-2020EPC00229

PATIENT
  Sex: Male

DRUGS (2)
  1. TYLENOL WITH CODEINE [Suspect]
     Active Substance: ACETAMINOPHEN\CODEINE PHOSPHATE
  2. OXYMORPHONE [Suspect]
     Active Substance: OXYMORPHONE

REACTIONS (4)
  - Intentional product misuse [Unknown]
  - Hernia [Unknown]
  - Surgery [Unknown]
  - Pain [Unknown]
